FAERS Safety Report 5343737-2 (Version None)
Quarter: 2007Q2

REPORT INFORMATION
  Report Type: 
  Country: None (occurrence: None)
  Receive Date: 20070604
  Receipt Date: 20070523
  Transmission Date: 20071010
  Serious: Yes (Other)
  Sender: FDA-Public Use
  Company Number: CH-AMGEN-US227087

PATIENT
  Age: 27 Year
  Sex: Female

DRUGS (8)
  1. ENBREL [Suspect]
     Indication: POLYARTHRITIS
     Dates: start: 20020816
  2. DICLOFENAC [Suspect]
     Dosage: UNKNOWN
  3. SPIRICORT [Concomitant]
  4. FOSAMAX [Concomitant]
  5. GYNO-TARDYFERON [Concomitant]
  6. OMEPRAZOLE [Concomitant]
     Dosage: 20 MG
  7. CALCORT [Concomitant]
  8. CELEBREX [Concomitant]

REACTIONS (1)
  - COLITIS ULCERATIVE [None]
